FAERS Safety Report 8993216 (Version 1)
Quarter: 2013Q1

REPORT INFORMATION
  Report Type: Spontaneous
  Country: BR (occurrence: BR)
  Receive Date: 20130102
  Receipt Date: 20130102
  Transmission Date: 20140127
  Serious: Yes (Life-Threatening, Hospitalization, Other)
  Sender: FDA-Public Use
  Company Number: BR-PFIZER INC-2012331209

PATIENT
  Age: 58 Year
  Sex: Male

DRUGS (6)
  1. ATENOLOL [Suspect]
     Indication: HYPERTENSION
     Dosage: 50 MG, DAILY
     Route: 048
     Dates: start: 2002, end: 20121218
  2. LISINOPRIL [Suspect]
     Indication: HYPERTENSION
     Dosage: 20 MG, UNK
     Route: 048
     Dates: start: 2002, end: 20121218
  3. BRILINTA [Suspect]
     Indication: PLATELET AGGREGATION
     Dosage: 90 MG, 2X/DAY
     Route: 048
     Dates: start: 20121219, end: 20121220
  4. IODINE [Suspect]
     Indication: COMPUTERISED TOMOGRAM
     Dosage: UNK
     Route: 065
     Dates: start: 20121218, end: 20121218
  5. SOMALGIN [Concomitant]
     Dosage: UNK
     Route: 048
     Dates: start: 20121219
  6. DIOVAN [Concomitant]
     Dosage: UNK
     Route: 048
     Dates: start: 20121219

REACTIONS (8)
  - Anaphylactic shock [Recovered/Resolved]
  - Malaise [Recovered/Resolved]
  - Coronary artery occlusion [Recovered/Resolved]
  - Cold sweat [Not Recovered/Not Resolved]
  - Petechiae [Not Recovered/Not Resolved]
  - Dyspnoea [Not Recovered/Not Resolved]
  - Nausea [Not Recovered/Not Resolved]
  - Diarrhoea [Not Recovered/Not Resolved]
